FAERS Safety Report 5169905-0 (Version None)
Quarter: 2006Q4

REPORT INFORMATION
  Report Type: 
  Country: None (occurrence: None)
  Receive Date: 20061212
  Receipt Date: 20061130
  Transmission Date: 20070319
  Serious: Yes (Other)
  Sender: FDA-Public Use
  Company Number: US-ELI_LILLY_AND_COMPANY-US200612001051

PATIENT
  Sex: Female
  Weight: 2.04 kg

DRUGS (4)
  1. ZYPREXA [Suspect]
     Route: 064
  2. ABILIFY [Concomitant]
     Route: 064
  3. SEROQUEL [Concomitant]
     Route: 064
  4. RISPERDAL                               /SWE/ [Concomitant]
     Route: 064

REACTIONS (3)
  - DRUG EXPOSURE DURING PREGNANCY [None]
  - PREGNANCY [None]
  - SMALL FOR DATES BABY [None]
